FAERS Safety Report 8524884-0 (Version None)
Quarter: 2012Q3

REPORT INFORMATION
  Report Type: 
  Country: None (occurrence: None)
  Receive Date: 20120720
  Receipt Date: 20120711
  Transmission Date: 20120928
  Serious: Yes (Hospitalization, Other)
  Sender: FDA-Public Use
  Company Number: US-MSD-1207USA003755

PATIENT

DRUGS (4)
  1. PRILOSEC [Concomitant]
     Dosage: UNK
     Dates: start: 19900101
  2. FOSAMAX PLUS D [Suspect]
     Dosage: 70 MG, UNK
     Dates: start: 20081220, end: 20110526
  3. BENTYL [Concomitant]
     Indication: IRRITABLE BOWEL SYNDROME
     Dosage: UNK
     Dates: start: 19880101
  4. FOSAMAX [Suspect]
     Indication: OSTEOPOROSIS
     Dosage: 70 MG, UNK
     Route: 048
     Dates: start: 20010901

REACTIONS (17)
  - SLEEP DISORDER [None]
  - TOOTH DISORDER [None]
  - PAIN [None]
  - HIP FRACTURE [None]
  - TENSION HEADACHE [None]
  - VULVOVAGINAL DRYNESS [None]
  - ORAL HERPES [None]
  - VITAMIN D DEFICIENCY [None]
  - FEMUR FRACTURE [None]
  - ASTHMA [None]
  - CHRONIC SINUSITIS [None]
  - SKIN IRRITATION [None]
  - MUSCULOSKELETAL STIFFNESS [None]
  - ACNE [None]
  - POST-TRAUMATIC STRESS DISORDER [None]
  - MIGRAINE [None]
  - BRONCHITIS [None]
